FAERS Safety Report 18981537 (Version 4)
Quarter: 2021Q3

REPORT INFORMATION
  Report Type: Report from Study
  Country: BG (occurrence: BG)
  Receive Date: 20210308
  Receipt Date: 20210705
  Transmission Date: 20211014
  Serious: Yes (Hospitalization, Other)
  Sender: FDA-Public Use
  Company Number: BG-TAKEDA-2021TUS013885

PATIENT
  Age: 42 Year
  Sex: Female

DRUGS (1)
  1. VEDOLIZUMAB [Suspect]
     Active Substance: VEDOLIZUMAB
     Indication: CROHN^S DISEASE
     Dosage: 300 MILLIGRAM, Q4WEEKS
     Route: 042
     Dates: start: 20190822, end: 20210430

REACTIONS (3)
  - Thrombophlebitis migrans [Unknown]
  - Autoimmune disorder [Unknown]
  - Varicose vein [Unknown]

NARRATIVE: CASE EVENT DATE: 20210228
